FAERS Safety Report 4639649-X (Version None)
Quarter: 2005Q2

REPORT INFORMATION
  Report Type: 
  Country: None (occurrence: None)
  Receive Date: 20050415
  Receipt Date: 20050330
  Transmission Date: 20051028
  Serious: Yes (Hospitalization)
  Sender: FDA-Public Use
  Company Number: GXKR2005PL00847

PATIENT
  Sex: Female
  Weight: 90 kg

DRUGS (5)
  1. KETOPROFEN [Suspect]
     Indication: BACK PAIN
     Dosage: 200 MG, ORAL
     Route: 048
     Dates: start: 20050225, end: 20050228
  2. INDOMETHACIN [Suspect]
     Indication: BACK PAIN
     Dosage: 150 MG, ORAL
     Route: 048
     Dates: start: 20050225, end: 20050228
  3. VINOPTIN (VINPOCETINE) [Concomitant]
  4. SELGIN (SELEGILINE HYDROCHLORIDE) [Concomitant]
  5. MELOKSAM (MELOXICAM) [Suspect]
     Dosage: 30 MG,
     Dates: start: 20050225, end: 20050228

REACTIONS (3)
  - DRUG INTERACTION [None]
  - GASTROINTESTINAL HAEMORRHAGE [None]
  - MEDICATION ERROR [None]
